FAERS Safety Report 20432235 (Version 1)
Quarter: 2022Q1

REPORT INFORMATION
  Report Type: Other
  Country: SE (occurrence: SE)
  Receive Date: 20220204
  Receipt Date: 20220204
  Transmission Date: 20220423
  Serious: Yes (Hospitalization)
  Sender: FDA-Public Use
  Company Number: None

PATIENT
  Age: 71 Year
  Sex: Male

DRUGS (5)
  1. RAPISCAN [Suspect]
     Active Substance: REGADENOSON
     Indication: Scan myocardial perfusion
     Dosage: 400 MICROGRAMS/5 ML, ONCE
     Route: 042
     Dates: start: 20210601, end: 20210601
  2. RAPISCAN [Suspect]
     Active Substance: REGADENOSON
     Indication: Product used for unknown indication
  3. MYOVIEW [Suspect]
     Active Substance: TECHNETIUM TC-99M TETROFOSMIN
     Indication: Diagnostic procedure
     Dosage: 230 MICROGRAMS ONCE, 436 MBQ
     Route: 042
     Dates: start: 20210601, end: 20210601
  4. MYOVIEW [Suspect]
     Active Substance: TECHNETIUM TC-99M TETROFOSMIN
     Indication: Product used for unknown indication
  5. TECHNETIUM TC-99M [Concomitant]
     Active Substance: TECHNETIUM TC-99M

REACTIONS (1)
  - Cerebrovascular accident [Recovered/Resolved]

NARRATIVE: CASE EVENT DATE: 20210601
